FAERS Safety Report 8986271 (Version 6)
Quarter: 2014Q2

REPORT INFORMATION
  Report Type: Spontaneous
  Country: US (occurrence: US)
  Receive Date: 20121226
  Receipt Date: 20140430
  Transmission Date: 20141212
  Serious: Yes (Hospitalization)
  Sender: FDA-Public Use
  Company Number: US-B.I. PHARMACEUTICALS,INC./RIDGEFIELD-2012-BI-03886BP

PATIENT
  Age: 68 Year
  Sex: Female
  Weight: 77.11 kg

DRUGS (19)
  1. PRADAXA [Suspect]
     Indication: ATRIAL FIBRILLATION
     Dosage: 300 MG
     Route: 048
     Dates: start: 20110618, end: 20110821
  2. PRADAXA [Suspect]
     Indication: ANTICOAGULANT THERAPY
  3. LIPITOR [Concomitant]
     Dosage: 20 MG
     Route: 065
  4. TRAZODONE [Concomitant]
     Indication: INSOMNIA
     Route: 048
  5. ATIVAN [Concomitant]
     Route: 065
  6. AMIODARONE HCL [Concomitant]
     Dosage: 200 MG
     Route: 048
  7. LORAZEPAM [Concomitant]
     Dosage: 1 MG
     Route: 048
  8. OLMESARTAN MEDOXOMIL [Concomitant]
     Dosage: 40 MG
     Route: 048
  9. DILTIAZEM HCL [Concomitant]
     Dosage: 360 MG
     Route: 048
  10. IPRATROPIUM BROMIDE [Concomitant]
     Dosage: 8 PUF
     Route: 055
  11. MOMETASONE FUROATE [Concomitant]
     Dosage: 1 PUF
     Route: 055
  12. LEVALBUTEROL HCL [Concomitant]
     Route: 055
  13. CALCIUM [Concomitant]
     Dosage: 1000 MG
     Route: 048
  14. CHOLECALCIFEROL [Concomitant]
     Dosage: 1000 U
     Route: 048
  15. ERGOCALCIFEROL [Concomitant]
     Route: 048
  16. ROPINIROLE HYDROCHLORIDE [Concomitant]
     Dosage: 0.25 MG
     Route: 048
  17. OMEPRAZOLE [Concomitant]
     Dosage: 40 MG
     Route: 048
  18. ASCORBIC AICD [Concomitant]
     Dosage: 500 MG
     Route: 048
  19. GLUCOSAMINE HCL/MSM [Concomitant]
     Route: 048

REACTIONS (5)
  - Haemorrhagic stroke [Unknown]
  - Cerebral haemorrhage [Recovered/Resolved]
  - Toxicity to various agents [Unknown]
  - Fall [Unknown]
  - Pelvic fracture [Unknown]
